FAERS Safety Report 18042837 (Version 1)
Quarter: 2020Q3

REPORT INFORMATION
  Report Type: Spontaneous
  Country: US (occurrence: US)
  Receive Date: 20200716
  Receipt Date: 20200716
  Transmission Date: 20201103
  Serious: No
  Sender: FDA-Public Use
  Company Number: None

PATIENT
  Age: 76 Year
  Sex: Male

DRUGS (1)
  1. WARFARIN (WARFARIN NA (EXELAN) 5MG TAB) [Suspect]
     Active Substance: WARFARIN SODIUM
     Indication: PERIPHERAL VASCULAR DISORDER
     Dates: start: 20180904

REACTIONS (3)
  - Haemoglobin decreased [None]
  - Haematuria [None]
  - Haemorrhage [None]

NARRATIVE: CASE EVENT DATE: 20180904
